FAERS Safety Report 7490810-9 (Version None)
Quarter: 2011Q2

REPORT INFORMATION
  Report Type: 
  Country: None (occurrence: None)
  Receive Date: 20110519
  Receipt Date: 20110510
  Transmission Date: 20111010
  Serious: Yes (Hospitalization, Other)
  Sender: FDA-Public Use
  Company Number: AT-NOVOPROD-315537

PATIENT
  Sex: Female
  Weight: 104.7 kg

DRUGS (7)
  1. FLUVASTATIN [Concomitant]
     Indication: HYPERLIPIDAEMIA
     Dosage: 40 MG, QD
     Route: 048
     Dates: start: 20070110
  2. IDEGASP 30 PDS290 [Suspect]
     Indication: TYPE 2 DIABETES MELLITUS
     Dosage: 68 IU, QD
     Route: 058
     Dates: start: 20100208, end: 20100811
  3. INSULIN [Suspect]
     Indication: TYPE 2 DIABETES MELLITUS
     Dosage: 76 IU, QD
     Route: 058
     Dates: start: 20100812, end: 20100823
  4. CONCOR PLUS [Concomitant]
     Indication: HYPERTENSION
     Dosage: 1 TAB, QD
     Route: 048
     Dates: start: 19900101
  5. DIABETEX [Concomitant]
     Indication: DIABETES MELLITUS
     Dosage: 1700 MG, QD
     Route: 048
     Dates: start: 20100208
  6. VENORUTON                          /00027704/ [Concomitant]
     Indication: VARICOSE VEIN
     Dosage: 1 TAB, QD
     Route: 048
     Dates: start: 20100713
  7. IDEGASP 30 PDS290 [Suspect]
     Dosage: 64 IU, QD
     Route: 058
     Dates: start: 20100824

REACTIONS (1)
  - POLYMYALGIA RHEUMATICA [None]
